FAERS Safety Report 10557376 (Version 1)
Quarter: 2014Q4

REPORT INFORMATION
  Report Type: Spontaneous
  Country: US (occurrence: None)
  Receive Date: 20141029
  Receipt Date: 20141029
  Transmission Date: 20150529
  Serious: Yes (Other)
  Sender: FDA-Public Use
  Company Number: 2014EDG00016

PATIENT
  Age: 51 Year
  Sex: Male

DRUGS (1)
  1. FLUOXETINE [Suspect]
     Active Substance: FLUOXETINE\FLUOXETINE HYDROCHLORIDE
     Indication: MAJOR DEPRESSION

REACTIONS (34)
  - Protein urine present [None]
  - Anaemia postoperative [None]
  - Vomiting [None]
  - Drug withdrawal syndrome [None]
  - Blood zinc decreased [None]
  - Blood copper decreased [None]
  - Tachycardia [None]
  - Incoherent [None]
  - Mutism [None]
  - Memory impairment [None]
  - Thrombocytosis [None]
  - Muscle rigidity [None]
  - Pulmonary embolism [None]
  - Delirium [None]
  - Acute respiratory distress syndrome [None]
  - Stupor [None]
  - Echolalia [None]
  - Sputum culture positive [None]
  - Hypertension [None]
  - Urobilinogen urine [None]
  - Pneumonia [None]
  - Oxygen saturation decreased [None]
  - Diarrhoea [None]
  - Staphylococcus test positive [None]
  - Encephalopathy [None]
  - Blood lactic acid increased [None]
  - Cellulitis [None]
  - Agitation [None]
  - Confusional state [None]
  - Disorientation [None]
  - Thermal burn [None]
  - Catatonia [None]
  - Respiratory rate increased [None]
  - Hypertonia [None]
